FAERS Safety Report 10144435 (Version 2)
Quarter: 2014Q2

REPORT INFORMATION
  Report Type: Spontaneous
  Country: GB (occurrence: GB)
  Receive Date: 20140430
  Receipt Date: 20140601
  Transmission Date: 20141212
  Serious: Yes (Congenital Anomaly)
  Sender: FDA-Public Use
  Company Number: PHHY2014GB049908

PATIENT
  Sex: 0

DRUGS (2)
  1. CITALOPRAM [Suspect]
     Indication: AFFECTIVE DISORDER
     Route: 064
  2. ZOLPIDEM [Concomitant]

REACTIONS (4)
  - Cardiac septal defect [Not Recovered/Not Resolved]
  - Congenital pulmonary valve atresia [Not Recovered/Not Resolved]
  - Congenital aortic atresia [Not Recovered/Not Resolved]
  - Foetal exposure during pregnancy [Unknown]
